FAERS Safety Report 9563574 (Version 1)
Quarter: 2013Q1

REPORT INFORMATION
  Report Type: Spontaneous
  Country: US (occurrence: None)
  Receive Date: 20121218
  Receipt Date: 20121218
  Transmission Date: 20140127
  Serious: Yes (Other)
  Sender: FDA-Public Use
  Company Number: PHEH2011US06020

PATIENT
  Age: 77 Year
  Sex: Female

DRUGS (3)
  1. ZOMETA (ZOLEDRONATE) UNKNOWN [Suspect]
     Indication: OSTEOPOROSIS
  2. PAMIDRONATE DISODIUM [Suspect]
  3. CHEMOTHERAPEUTICS (NO INGREDIENTS/SUBSTANCES) [Concomitant]

REACTIONS (3)
  - Neoplasm malignant [None]
  - Pain [None]
  - Neoplasm progression [None]
